FAERS Safety Report 12348662 (Version 1)
Quarter: 2016Q2

REPORT INFORMATION
  Report Type: Spontaneous
  Country: IR (occurrence: IR)
  Receive Date: 20160509
  Receipt Date: 20160509
  Transmission Date: 20160815
  Serious: Yes (Hospitalization)
  Sender: FDA-Public Use
  Company Number: IR-AKORN PHARMACEUTICALS-2016AKN00245

PATIENT
  Age: 19 Year
  Sex: Female

DRUGS (2)
  1. ISOTRETINOIN [Suspect]
     Active Substance: ISOTRETINOIN
     Indication: ACNE
     Dosage: 20 MG, 2X/DAY
     Route: 048
  2. ISOTRETINOIN [Suspect]
     Active Substance: ISOTRETINOIN
     Dosage: GRADUALLY TAPERED TO 20 MG WEEKLY
     Route: 048

REACTIONS (1)
  - Acute febrile neutrophilic dermatosis [Recovered/Resolved]
